FAERS Safety Report 21382287 (Version 1)
Quarter: 2022Q3

REPORT INFORMATION
  Report Type: Spontaneous
  Country: US (occurrence: US)
  Receive Date: 20220927
  Receipt Date: 20220927
  Transmission Date: 20221026
  Serious: No
  Sender: FDA-Public Use
  Company Number: US-C B Fleet Co Inc-202204-US-001215

PATIENT
  Age: 28 Year
  Sex: Female

DRUGS (1)
  1. MONISTAT 3 COMBINATION PACK [Suspect]
     Active Substance: MICONAZOLE NITRATE
     Indication: Fungal infection
     Dosage: USED ONCE

REACTIONS (4)
  - Vulvovaginal burning sensation [Recovered/Resolved]
  - Vaginal haemorrhage [Recovered/Resolved]
  - Pyrexia [Recovered/Resolved]
  - Malaise [Recovered/Resolved]
